FAERS Safety Report 18929199 (Version 1)
Quarter: 2021Q1

REPORT INFORMATION
  Report Type: Spontaneous
  Country: US (occurrence: US)
  Receive Date: 20210223
  Receipt Date: 20210223
  Transmission Date: 20210420
  Serious: No
  Sender: FDA-Public Use
  Company Number: US-ELI_LILLY_AND_COMPANY-US202102003021

PATIENT
  Age: 70 Year
  Sex: Female

DRUGS (1)
  1. BAMLANIVIMAB 700MG [Suspect]
     Active Substance: BAMLANIVIMAB
     Indication: COVID-19
     Dosage: 700 MG, SINGLE
     Route: 042
     Dates: start: 20210101, end: 20210101

REACTIONS (5)
  - Nasal congestion [Unknown]
  - Cough [Unknown]
  - Arthralgia [Unknown]
  - Chills [Unknown]
  - Lethargy [Unknown]
